FAERS Safety Report 11065542 (Version 2)
Quarter: 2015Q2

REPORT INFORMATION
  Report Type: Spontaneous
  Country: US (occurrence: US)
  Receive Date: 20150425
  Receipt Date: 20150525
  Transmission Date: 20150821
  Serious: No
  Sender: FDA-Public Use
  Company Number: US-JNJFOC-20140416368

PATIENT
  Sex: Female

DRUGS (1)
  1. STELARA [Suspect]
     Active Substance: USTEKINUMAB
     Indication: PRODUCT USED FOR UNKNOWN INDICATION
     Dosage: 270MG AT DAY 0,AT DAY 29 - 90MG??EVERY 4 WEEKS
     Route: 058

REACTIONS (2)
  - Syringe issue [Unknown]
  - Drug dose omission [Unknown]
